FAERS Safety Report 13270143 (Version 1)
Quarter: 2017Q1

REPORT INFORMATION
  Report Type: Report from Study
  Country: CA (occurrence: CA)
  Receive Date: 20170224
  Receipt Date: 20170224
  Transmission Date: 20170428
  Serious: Yes (Other)
  Sender: FDA-Public Use
  Company Number: CA-HLSUS-2016-CA-000701

PATIENT
  Age: 56 Year
  Sex: Female
  Weight: 85.73 kg

DRUGS (3)
  1. SERTRALINE [Concomitant]
     Active Substance: SERTRALINE HYDROCHLORIDE
  2. CLOZARIL [Suspect]
     Active Substance: CLOZAPINE
     Dosage: 150MG AM, 100MG PM
     Route: 048
     Dates: start: 20050322
  3. OXYCODONE [Concomitant]
     Active Substance: OXYCODONE
     Dosage: DECREASED FROM 15MG TO 10MG

REACTIONS (1)
  - Electrocardiogram T wave inversion [Unknown]

NARRATIVE: CASE EVENT DATE: 20161125
